FAERS Safety Report 24873539 (Version 3)
Quarter: 2025Q1

REPORT INFORMATION
  Report Type: Spontaneous
  Country: US (occurrence: US)
  Receive Date: 20250122
  Receipt Date: 20250214
  Transmission Date: 20250409
  Serious: Yes (Hospitalization, Other)
  Sender: UCB
  Company Number: US-UCBSA-2025003274

PATIENT
  Age: 72 Year
  Sex: Male

DRUGS (2)
  1. NEUPRO [Suspect]
     Active Substance: ROTIGOTINE
     Indication: Parkinson^s disease
     Route: 062
     Dates: start: 2021
  2. NEUPRO [Suspect]
     Active Substance: ROTIGOTINE
     Dosage: 1 MILLIGRAM, UNK
     Route: 062
     Dates: start: 202304

REACTIONS (4)
  - Fall [Unknown]
  - Hallucination [Recovered/Resolved]
  - Influenza [Recovered/Resolved]
  - Asthenia [Unknown]

NARRATIVE: CASE EVENT DATE: 20240326
